FAERS Safety Report 5392260-8 (Version None)
Quarter: 2007Q3

REPORT INFORMATION
  Report Type: 
  Country: None (occurrence: None)
  Receive Date: 20070720
  Receipt Date: 20070712
  Transmission Date: 20080115
  Serious: Yes (Hospitalization)
  Sender: FDA-Public Use
  Company Number: US-JNJFOC-20070606744

PATIENT
  Sex: Male

DRUGS (5)
  1. PREZISTA [Suspect]
     Indication: HIV INFECTION
     Route: 048
  2. REYATAZ [Concomitant]
     Indication: HIV INFECTION
  3. TRUVADA [Concomitant]
     Indication: HIV INFECTION
  4. RETROVIR [Concomitant]
     Indication: HIV INFECTION
  5. DAPSONE [Concomitant]
     Indication: DRUG HYPERSENSITIVITY

REACTIONS (5)
  - BLOOD BILIRUBIN INCREASED [None]
  - HAEMATURIA [None]
  - HEPATIC CIRRHOSIS [None]
  - IMMUNE RECONSTITUTION SYNDROME [None]
  - JAUNDICE [None]
